FAERS Safety Report 15416651 (Version 6)
Quarter: 2019Q4

REPORT INFORMATION
  Report Type: Report from Study
  Country: None (occurrence: US)
  Receive Date: 20180924
  Receipt Date: 20191031
  Transmission Date: 20200122
  Serious: Yes (Hospitalization, Other)
  Sender: FDA-Public Use
  Company Number: US-ABBVIE-18K-163-2404595-00

PATIENT
  Age: 80 Year
  Sex: Female

DRUGS (7)
  1. HUMIRA [Suspect]
     Active Substance: ADALIMUMAB
     Dosage: DAY 8
     Route: 058
     Dates: start: 20180622, end: 20180622
  2. METHOTREXATE. [Concomitant]
     Active Substance: METHOTREXATE
     Indication: PRODUCT USED FOR UNKNOWN INDICATION
     Dates: end: 2018
  3. HUMIRA [Suspect]
     Active Substance: ADALIMUMAB
     Indication: RHEUMATOID ARTHRITIS
     Dosage: DAY 1
     Route: 058
     Dates: start: 20180615, end: 20180615
  4. HUMIRA [Suspect]
     Active Substance: ADALIMUMAB
     Route: 058
     Dates: start: 20180914
  5. HUMIRA [Suspect]
     Active Substance: ADALIMUMAB
     Route: 058
     Dates: start: 20180706, end: 201808
  6. HUMIRA [Suspect]
     Active Substance: ADALIMUMAB
     Indication: RHEUMATOID ARTHRITIS
     Route: 058
  7. HUMIRA [Suspect]
     Active Substance: ADALIMUMAB
     Indication: UVEITIS

REACTIONS (29)
  - Loss of personal independence in daily activities [Recovering/Resolving]
  - Dizziness [Unknown]
  - Productive cough [Unknown]
  - Joint noise [Not Recovered/Not Resolved]
  - Glaucoma [Unknown]
  - Arthralgia [Recovered/Resolved]
  - Intraocular pressure test [Recovering/Resolving]
  - Rhinorrhoea [Recovering/Resolving]
  - Mobility decreased [Unknown]
  - Arthralgia [Not Recovered/Not Resolved]
  - Gait disturbance [Recovering/Resolving]
  - Fatigue [Unknown]
  - Peripheral swelling [Unknown]
  - Arthropathy [Unknown]
  - Cataract [Recovering/Resolving]
  - Joint swelling [Recovering/Resolving]
  - Fall [Unknown]
  - Back pain [Unknown]
  - Peripheral swelling [Unknown]
  - Eye oedema [Not Recovered/Not Resolved]
  - Faeces discoloured [Not Recovered/Not Resolved]
  - Joint stiffness [Unknown]
  - Visual impairment [Recovering/Resolving]
  - Uveitis [Not Recovered/Not Resolved]
  - Procedural pain [Unknown]
  - Musculoskeletal stiffness [Unknown]
  - Joint stiffness [Recovering/Resolving]
  - Diarrhoea [Not Recovered/Not Resolved]
  - Arthralgia [Not Recovered/Not Resolved]

NARRATIVE: CASE EVENT DATE: 2018
